FAERS Safety Report 10265368 (Version 1)
Quarter: 2014Q2

REPORT INFORMATION
  Report Type: Spontaneous
  Country: US (occurrence: US)
  Receive Date: 20140627
  Receipt Date: 20140627
  Transmission Date: 20141212
  Serious: Yes (Death)
  Sender: FDA-Public Use
  Company Number: US-GLAXOSMITHKLINE-A1074102A

PATIENT
  Age: 70 Year
  Sex: Male

DRUGS (2)
  1. MEKINIST [Suspect]
     Indication: NEOPLASM MALIGNANT
     Dosage: 2MG UNKNOWN
     Route: 065
     Dates: start: 20140513
  2. RADIATION THERAPY [Suspect]
     Indication: PRODUCT USED FOR UNKNOWN INDICATION

REACTIONS (16)
  - Malignant neoplasm progression [Fatal]
  - Osteonecrosis of jaw [Fatal]
  - Clostridium difficile colitis [Unknown]
  - Upper respiratory tract infection [Fatal]
  - Infection [Fatal]
  - Malnutrition [Fatal]
  - Asthenia [Not Recovered/Not Resolved]
  - Fatigue [Not Recovered/Not Resolved]
  - Dyspnoea [Not Recovered/Not Resolved]
  - Pain in extremity [Not Recovered/Not Resolved]
  - Hypotension [Recovering/Resolving]
  - Troponin increased [Unknown]
  - Pain [Unknown]
  - Cardiac disorder [Unknown]
  - Jaw fracture [Unknown]
  - Chronic obstructive pulmonary disease [Unknown]
